FAERS Safety Report 8394859-3 (Version None)
Quarter: 2012Q2

REPORT INFORMATION
  Report Type: 
  Country: None (occurrence: None)
  Receive Date: 20120530
  Receipt Date: 20120521
  Transmission Date: 20120825
  Serious: Yes (Hospitalization, Other)
  Sender: FDA-Public Use
  Company Number: US-CELGENEUS-163-21880-12032245

PATIENT
  Sex: Male
  Weight: 78.7 kg

DRUGS (15)
  1. FISH OIL [Concomitant]
     Dosage: 1200 MILLIGRAM
     Route: 048
  2. PROTONIX [Concomitant]
     Dosage: 40 MILLIGRAM
     Route: 048
  3. REVLIMID [Suspect]
     Indication: MULTIPLE MYELOMA
     Dosage: 10 MILLIGRAM
     Route: 048
     Dates: start: 20080128, end: 20111017
  4. ASPIRIN [Concomitant]
     Dosage: 81 MILLIGRAM
     Route: 048
     Dates: start: 20080312
  5. IMODIUM [Concomitant]
     Dosage: 2 MILLIGRAM
     Route: 048
  6. BORTEZOMIB [Suspect]
     Indication: MULTIPLE MYELOMA
     Dosage: 1 MILLIGRAM/SQ. METER
     Route: 065
     Dates: start: 20080128, end: 20111017
  7. ACYCLOVIR [Concomitant]
     Indication: INFECTION PROPHYLAXIS
     Dosage: 400 MILLIGRAM
     Route: 048
     Dates: start: 20080101
  8. ACETAMINOPHEN/HYDROCODONE BITARTRATE [Concomitant]
     Indication: BACK PAIN
     Dosage: 5MG-500MG
     Route: 048
  9. ZOMETA [Concomitant]
     Indication: MULTIPLE MYELOMA
     Route: 041
  10. MULTI-VITAMINS [Concomitant]
     Route: 065
  11. DEXAMETHASONE [Suspect]
     Indication: MULTIPLE MYELOMA
     Dosage: 10 MILLIGRAM
     Route: 065
     Dates: start: 20080128, end: 20111017
  12. TYLENOL [Concomitant]
     Dosage: 650 MILLIGRAM
     Route: 048
  13. ACETAMINOPHEN/HYDROCODONE BITARTRATE [Concomitant]
     Route: 048
  14. VITAMIN B COMPLEX CAP [Concomitant]
     Dosage: 1 TABLET
     Route: 048
  15. FILGRASTIM [Concomitant]
     Dosage: 390 MICROGRAM
     Route: 065
     Dates: start: 20111025

REACTIONS (3)
  - SQUAMOUS CELL CARCINOMA OF SKIN [None]
  - MYELODYSPLASTIC SYNDROME [None]
  - LUNG SQUAMOUS CELL CARCINOMA STAGE 0 [None]
